FAERS Safety Report 22019578 (Version 9)
Quarter: 2023Q4

REPORT INFORMATION
  Report Type: Report from Study
  Country: CA (occurrence: CA)
  Receive Date: 20230222
  Receipt Date: 20231030
  Transmission Date: 20240110
  Serious: Yes (Other)
  Sender: FDA-Public Use
  Company Number: CA-JNJFOC-20230134098

PATIENT
  Age: 12 Year
  Sex: Male
  Weight: 53 kg

DRUGS (2)
  1. REMICADE [Suspect]
     Active Substance: INFLIXIMAB
     Indication: Crohn^s disease
     Dosage: THE PATIENT ALSO RECEIVED DOSE ON 11-AUG-2022.?ON 13-FEB-2023, THE PATIENT RECEIVED 11TH INFLIXIMAB
     Route: 041
     Dates: start: 20220413
  2. REMICADE [Suspect]
     Active Substance: INFLIXIMAB
     Dosage: V9: EXPIRY DATE: 28-FEB-2026
     Route: 042

REACTIONS (17)
  - Clostridium difficile infection [Recovered/Resolved]
  - Crohn^s disease [Not Recovered/Not Resolved]
  - Nasopharyngitis [Not Recovered/Not Resolved]
  - Viral infection [Not Recovered/Not Resolved]
  - Pharyngitis streptococcal [Not Recovered/Not Resolved]
  - Gastrooesophageal reflux disease [Recovered/Resolved]
  - Anal incontinence [Unknown]
  - Polyp [Unknown]
  - Asthenia [Unknown]
  - Pallor [Unknown]
  - Cyanosis [Unknown]
  - Skin ulcer [Not Recovered/Not Resolved]
  - Dyspnoea exertional [Unknown]
  - Vertigo [Not Recovered/Not Resolved]
  - Dyspepsia [Unknown]
  - Myalgia [Not Recovered/Not Resolved]
  - Therapeutic product effect decreased [Unknown]

NARRATIVE: CASE EVENT DATE: 20230101
